FAERS Safety Report 14853597 (Version 1)
Quarter: 2018Q2

REPORT INFORMATION
  Report Type: Spontaneous
  Country: US (occurrence: US)
  Receive Date: 20180507
  Receipt Date: 20180507
  Transmission Date: 20180711
  Serious: No
  Sender: FDA-Public Use
  Company Number: US-EGALET US INC-US-2018EGA000171

PATIENT

DRUGS (1)
  1. ARYMO ER [Suspect]
     Active Substance: MORPHINE SULFATE
     Dosage: UNK

REACTIONS (1)
  - Dyspnoea [Unknown]
